FAERS Safety Report 25088982 (Version 1)
Quarter: 2025Q1

REPORT INFORMATION
  Report Type: Spontaneous
  Country: CN (occurrence: CN)
  Receive Date: 20250318
  Receipt Date: 20250318
  Transmission Date: 20250408
  Serious: Yes (Other)
  Sender: AMGEN
  Company Number: CN-AMGEN-CHNSP2025050219

PATIENT
  Age: 49 Year
  Sex: Female

DRUGS (2)
  1. CARFILZOMIB [Suspect]
     Active Substance: CARFILZOMIB
     Indication: Plasma cell myeloma
     Route: 065
     Dates: start: 20240607
  2. CARFILZOMIB [Suspect]
     Active Substance: CARFILZOMIB
     Route: 065

REACTIONS (12)
  - Myelosuppression [Unknown]
  - Pneumonia [Unknown]
  - Thrombocytopenia [Unknown]
  - Granulocytosis [Unknown]
  - Vomiting [Unknown]
  - Coronavirus infection [Unknown]
  - Pleural thickening [Unknown]
  - Full blood count decreased [Unknown]
  - Light chain analysis decreased [Unknown]
  - Arteriosclerosis [Unknown]
  - Pharyngeal disorder [Unknown]
  - General physical health deterioration [Unknown]

NARRATIVE: CASE EVENT DATE: 20240607
